FAERS Safety Report 12233154 (Version 4)
Quarter: 2016Q2

REPORT INFORMATION
  Report Type: Report from Study
  Country: US (occurrence: US)
  Receive Date: 20160404
  Receipt Date: 20160418
  Transmission Date: 20160815
  Serious: No
  Sender: FDA-Public Use
  Company Number: US-AMGEN-USASL2016038069

PATIENT
  Age: 72 Year
  Sex: Female

DRUGS (1)
  1. ENBREL [Suspect]
     Active Substance: ETANERCEPT
     Indication: RHEUMATOID ARTHRITIS
     Dosage: 50 MG, QWK
     Route: 065
     Dates: start: 20160323, end: 20160330

REACTIONS (5)
  - Injection site pain [Unknown]
  - Drug hypersensitivity [Unknown]
  - Injection site vesicles [Recovered/Resolved]
  - Underdose [Unknown]
  - Erythema [Unknown]

NARRATIVE: CASE EVENT DATE: 2016
